FAERS Safety Report 16792277 (Version 1)
Quarter: 2019Q3

REPORT INFORMATION
  Report Type: Spontaneous
  Country: AR (occurrence: AR)
  Receive Date: 20190910
  Receipt Date: 20190910
  Transmission Date: 20191005
  Serious: Yes (Other)
  Sender: FDA-Public Use
  Company Number: AR-PFIZER INC-2019388699

PATIENT
  Age: 63 Year
  Sex: Female

DRUGS (1)
  1. IBRANCE [Suspect]
     Active Substance: PALBOCICLIB
     Indication: BREAST CANCER METASTATIC
     Dosage: 125 MG, CYCLIC (DAILY, SCHEME 3X1)
     Dates: start: 20180811

REACTIONS (6)
  - Arthritis [Unknown]
  - Ovarian cyst [Recovered/Resolved]
  - Spinal column injury [Unknown]
  - Arthropathy [Unknown]
  - Tumour haemorrhage [Unknown]
  - Scar [Unknown]

NARRATIVE: CASE EVENT DATE: 2019
